FAERS Safety Report 24383758 (Version 2)
Quarter: 2024Q4

REPORT INFORMATION
  Report Type: Spontaneous
  Country: ES (occurrence: ES)
  Receive Date: 20241001
  Receipt Date: 20241007
  Transmission Date: 20250114
  Serious: Yes (Hospitalization)
  Sender: SANDOZ
  Company Number: ES-002147023-NVSC2022ES023431

PATIENT
  Age: 72 Year
  Sex: Male
  Weight: 50 kg

DRUGS (61)
  1. ACYCLOVIR [Suspect]
     Active Substance: ACYCLOVIR
     Dosage: 800 MG, QD
     Route: 048
     Dates: start: 20211230
  2. ACYCLOVIR [Suspect]
     Active Substance: ACYCLOVIR
     Dosage: 400 MG, Q12H
     Route: 065
     Dates: start: 20211231
  3. ACYCLOVIR [Suspect]
     Active Substance: ACYCLOVIR
     Indication: Prophylaxis
     Dosage: 400 MG, Q12H (CAPSULE)
     Route: 065
     Dates: start: 20211230
  4. AMOXICILLIN [Suspect]
     Active Substance: AMOXICILLIN
     Indication: Product used for unknown indication
     Dosage: UNK
     Route: 065
  5. ASPIRIN [Suspect]
     Active Substance: ASPIRIN
     Indication: Product used for unknown indication
     Dosage: 100 MG, QD
     Route: 065
  6. ASPIRIN [Suspect]
     Active Substance: ASPIRIN
     Dosage: 100 MG, QD
     Route: 065
     Dates: start: 20211231
  7. ASPIRIN [Suspect]
     Active Substance: ASPIRIN
     Dosage: 100 MG, QD
     Route: 065
  8. ASPIRIN [Suspect]
     Active Substance: ASPIRIN
     Dosage: 100 MG, QD
     Route: 065
  9. ALLOPURINOL [Suspect]
     Active Substance: ALLOPURINOL
     Dosage: 300 MG, QD
     Route: 048
     Dates: start: 20211230, end: 20220217
  10. ALLOPURINOL [Suspect]
     Active Substance: ALLOPURINOL
     Indication: Prophylaxis
     Dosage: 300 MG, QD
     Route: 065
     Dates: start: 20211231, end: 20220217
  11. ALLOPURINOL [Suspect]
     Active Substance: ALLOPURINOL
     Dosage: 300 MG, QD
     Route: 065
  12. ALLOPURINOL [Suspect]
     Active Substance: ALLOPURINOL
     Dosage: 300 MG, QD
     Route: 065
  13. ALLOPURINOL [Suspect]
     Active Substance: ALLOPURINOL
     Dosage: UNK
     Route: 065
     Dates: start: 20211231
  14. EPCORITAMAB [Suspect]
     Active Substance: EPCORITAMAB
     Indication: Follicular lymphoma
     Dosage: 375 MG
     Route: 065
     Dates: start: 20220107
  15. LENALIDOMIDE [Suspect]
     Active Substance: LENALIDOMIDE
     Indication: B-cell lymphoma
     Dosage: 20 MG
     Route: 065
  16. LENALIDOMIDE [Suspect]
     Active Substance: LENALIDOMIDE
     Indication: Follicular lymphoma
  17. OMEPRAZOLE [Suspect]
     Active Substance: OMEPRAZOLE
     Dosage: 20 MG, QD
     Route: 042
  18. OMEPRAZOLE [Suspect]
     Active Substance: OMEPRAZOLE
     Indication: Prophylaxis
     Dosage: 20 MG, QD
     Route: 048
     Dates: start: 20211230
  19. OMEPRAZOLE [Suspect]
     Active Substance: OMEPRAZOLE
     Dosage: 20 MG, QD
     Route: 065
     Dates: start: 20211231
  20. OMEPRAZOLE [Suspect]
     Active Substance: OMEPRAZOLE
     Dosage: 20 MG, QD
     Route: 065
  21. ACETAMINOPHEN [Suspect]
     Active Substance: ACETAMINOPHEN
     Indication: Pain
     Dosage: 1 G
     Route: 048
     Dates: start: 20210107
  22. ACETAMINOPHEN [Suspect]
     Active Substance: ACETAMINOPHEN
     Dosage: 1 G
     Route: 048
     Dates: start: 20210114
  23. ACETAMINOPHEN [Suspect]
     Active Substance: ACETAMINOPHEN
     Dosage: 1 G
     Route: 048
     Dates: start: 20211231
  24. ACETAMINOPHEN [Suspect]
     Active Substance: ACETAMINOPHEN
     Dosage: 3X/DAY (TAKE A PILL PER 8 HRS)
     Route: 048
     Dates: start: 20211231, end: 20220114
  25. SODIUM CHLORIDE [Suspect]
     Active Substance: SODIUM CHLORIDE
     Indication: Product used for unknown indication
     Dosage: UNK
     Route: 065
  26. PREDNISONE [Suspect]
     Active Substance: PREDNISONE
     Indication: Product used for unknown indication
     Dosage: 100 MG
     Route: 048
     Dates: start: 20220101, end: 20220117
  27. PREDNISONE [Suspect]
     Active Substance: PREDNISONE
     Dosage: 100 MG
     Route: 048
     Dates: start: 20220108, end: 20220110
  28. PREDNISONE [Suspect]
     Active Substance: PREDNISONE
     Dosage: 100 MG
     Route: 048
     Dates: start: 20220115, end: 20220117
  29. PREDNISONE [Suspect]
     Active Substance: PREDNISONE
     Dosage: 100 MG
     Route: 048
  30. PREDNISONE [Suspect]
     Active Substance: PREDNISONE
     Dosage: 100 MG
     Route: 065
     Dates: start: 20220101, end: 20220103
  31. PREDNISONE [Suspect]
     Active Substance: PREDNISONE
     Dosage: 100 MG
     Route: 065
  32. PREDNISONE [Suspect]
     Active Substance: PREDNISONE
     Dosage: 100 MG
     Route: 065
  33. RITUXIMAB [Suspect]
     Active Substance: RITUXIMAB
     Indication: B-cell lymphoma
     Dosage: 375 MG, QW
     Route: 042
     Dates: start: 20211230
  34. RITUXIMAB [Suspect]
     Active Substance: RITUXIMAB
     Dosage: 375 MG/M2, QW
     Route: 042
     Dates: start: 20211231
  35. RITUXIMAB [Suspect]
     Active Substance: RITUXIMAB
     Dosage: 375 MG/M2
     Route: 048
     Dates: start: 20220107
  36. RITUXIMAB [Suspect]
     Active Substance: RITUXIMAB
     Indication: Follicular lymphoma
     Dosage: UNK
     Route: 042
  37. SULFAMETHOXAZOLE\TRIMETHOPRIM [Suspect]
     Active Substance: SULFAMETHOXAZOLE\TRIMETHOPRIM
     Indication: Prophylaxis
     Dosage: UNK
     Route: 048
     Dates: start: 20211230, end: 20220217
  38. SULFAMETHOXAZOLE\TRIMETHOPRIM [Suspect]
     Active Substance: SULFAMETHOXAZOLE\TRIMETHOPRIM
     Dosage: UNK
     Route: 048
     Dates: start: 20211231
  39. SULFAMETHOXAZOLE\TRIMETHOPRIM [Suspect]
     Active Substance: SULFAMETHOXAZOLE\TRIMETHOPRIM
     Indication: Product used for unknown indication
     Dosage: UNK, QD
     Route: 048
     Dates: start: 20211231, end: 20220217
  40. SODIUM FLUORIDE [Suspect]
     Active Substance: SODIUM FLUORIDE\SODIUM MONOFLUOROPHOSPHATE
     Indication: Product used for unknown indication
     Dosage: UNK
     Route: 065
  41. ASPIRIN [Concomitant]
     Active Substance: ASPIRIN
     Indication: Product used for unknown indication
     Dosage: UNK
     Route: 065
  42. ASPIRIN [Concomitant]
     Active Substance: ASPIRIN
     Dosage: UNK
     Route: 065
     Dates: start: 20211231
  43. DEXCHLORPHENIRAMINE [Concomitant]
     Active Substance: DEXCHLORPHENIRAMINE
     Indication: Product used for unknown indication
     Dosage: 5 MG
     Route: 042
     Dates: start: 20211231
  44. DEXCHLORPHENIRAMINE [Concomitant]
     Active Substance: DEXCHLORPHENIRAMINE
     Dosage: 5 MG
     Route: 042
     Dates: start: 20220107, end: 20220107
  45. DEXCHLORPHENIRAMINE [Concomitant]
     Active Substance: DEXCHLORPHENIRAMINE
     Dosage: 5 MG
     Route: 042
     Dates: start: 20220114
  46. DEXCHLORPHENIRAMINE [Concomitant]
     Active Substance: DEXCHLORPHENIRAMINE
     Dosage: UNK
     Route: 065
     Dates: start: 20211231, end: 20220114
  47. DEXCHLORPHENIRAMINE [Concomitant]
     Active Substance: DEXCHLORPHENIRAMINE
     Dosage: UNK
     Route: 065
     Dates: start: 20220107, end: 20220107
  48. FERROUS SULFATE [Concomitant]
     Active Substance: FERROUS SULFATE
     Indication: Product used for unknown indication
     Dosage: UNK
     Route: 065
     Dates: start: 20210915
  49. FERROUS SULFATE [Concomitant]
     Active Substance: FERROUS SULFATE
     Dosage: UNK
     Route: 065
     Dates: start: 20210915
  50. FERROUS SULFATE [Concomitant]
     Active Substance: FERROUS SULFATE
     Dosage: UNK
     Route: 065
     Dates: start: 20210915
  51. METHYLPREDNISOLONE [Concomitant]
     Active Substance: METHYLPREDNISOLONE
     Indication: Prophylaxis
     Dosage: 80 MG
     Route: 042
     Dates: start: 20211231
  52. METHYLPREDNISOLONE [Concomitant]
     Active Substance: METHYLPREDNISOLONE
     Dosage: 80 MG
     Route: 042
     Dates: start: 20220107
  53. METHYLPREDNISOLONE [Concomitant]
     Active Substance: METHYLPREDNISOLONE
     Dosage: 80 MG
     Route: 042
     Dates: start: 20220114
  54. METHYLPREDNISOLONE [Concomitant]
     Active Substance: METHYLPREDNISOLONE
     Dosage: UNK
     Route: 065
     Dates: start: 20211231, end: 20220114
  55. VALGANCICLOVIR [Concomitant]
     Active Substance: VALGANCICLOVIR
     Indication: Product used for unknown indication
     Dosage: UNK
     Route: 065
     Dates: start: 20220103, end: 20220116
  56. VALGANCICLOVIR [Concomitant]
     Active Substance: VALGANCICLOVIR
     Dosage: UNK
     Route: 065
     Dates: start: 20220103, end: 20220116
  57. VALGANCICLOVIR [Concomitant]
     Active Substance: VALGANCICLOVIR
     Dosage: UNK
     Route: 065
     Dates: start: 20220103, end: 20220116
  58. VALGANCICLOVIR [Concomitant]
     Active Substance: VALGANCICLOVIR
     Dosage: UNK
     Route: 065
     Dates: start: 20220103, end: 20220116
  59. VALGANCICLOVIR [Concomitant]
     Active Substance: VALGANCICLOVIR
     Dosage: UNK
     Route: 065
     Dates: start: 20220103, end: 20220116
  60. VALGANCICLOVIR [Concomitant]
     Active Substance: VALGANCICLOVIR
     Dosage: UNK
     Route: 065
     Dates: start: 20220103, end: 20220116
  61. VALGANCICLOVIR [Concomitant]
     Active Substance: VALGANCICLOVIR
     Dosage: UNK
     Route: 065
     Dates: start: 20220103, end: 20220116

REACTIONS (7)
  - Cytokine release syndrome [Recovered/Resolved]
  - Pyrexia [Recovered/Resolved]
  - Pyrexia [Recovered/Resolved]
  - Hypotension [Recovered/Resolved]
  - C-reactive protein increased [Unknown]
  - Fibrin D dimer increased [Unknown]
  - Haemoglobin decreased [Unknown]

NARRATIVE: CASE EVENT DATE: 20220115
